FAERS Safety Report 18865288 (Version 2)
Quarter: 2022Q2

REPORT INFORMATION
  Report Type: Report from Study
  Country: US (occurrence: US)
  Receive Date: 20210208
  Receipt Date: 20220420
  Transmission Date: 20220721
  Serious: Yes (Hospitalization, Other)
  Sender: FDA-Public Use
  Company Number: US-PINNACLE BIOLOGICS INC-2021-CLI-000001

PATIENT
  Age: 72 Year
  Sex: Male
  Weight: 77.551 kg

DRUGS (2)
  1. PHOTOFRIN [Suspect]
     Active Substance: PORFIMER SODIUM
     Indication: Mesothelioma
     Dosage: 155.4 MG, SINGLE
     Route: 042
     Dates: start: 20210111
  2. PHOTOFRIN [Suspect]
     Active Substance: PORFIMER SODIUM
     Indication: Photodynamic therapy

REACTIONS (2)
  - Diplegia [Recovered/Resolved]
  - Spinal cord infarction [Recovered/Resolved]

NARRATIVE: CASE EVENT DATE: 20210113
